FAERS Safety Report 8824433 (Version 2)
Quarter: 2012Q4

REPORT INFORMATION
  Report Type: 
  Country: US (occurrence: US)
  Receive Date: 20121004
  Receipt Date: 20121022
  Transmission Date: 20130627
  Serious: Yes (Hospitalization)
  Sender: FDA-Public Use
  Company Number: US-BAYER-2012-101127

PATIENT
  Age: 19 Year
  Sex: Female

DRUGS (4)
  1. YAZ [Suspect]
     Dosage: UNK
     Dates: start: 20080206, end: 20090106
  2. YASMIN [Suspect]
     Indication: POLYCYSTIC OVARIES
     Dosage: UNK
     Dates: start: 20080206, end: 20090106
  3. GLUCOPHAGE [Concomitant]
     Indication: POLYCYSTIC OVARIES
     Route: 048
  4. OSCAL [Concomitant]
     Dosage: 500 mg, UNK
     Route: 048

REACTIONS (3)
  - Pulmonary embolism [None]
  - Chest pain [None]
  - Painful respiration [None]
